FAERS Safety Report 13661784 (Version 1)
Quarter: 2017Q2

REPORT INFORMATION
  Report Type: Spontaneous
  Country: GB (occurrence: GB)
  Receive Date: 20170616
  Receipt Date: 20170616
  Transmission Date: 20170830
  Serious: Yes (Other)
  Sender: FDA-Public Use
  Company Number: GB-MYLANLABS-2017M1035023

PATIENT

DRUGS (3)
  1. CITALOPRAM [Suspect]
     Active Substance: CITALOPRAM HYDROBROMIDE
     Indication: DEPRESSION
     Dosage: 20 MG, UNK
     Route: 048
     Dates: start: 20170427, end: 20170525
  2. ZIMOVANE [Concomitant]
     Active Substance: ZOPICLONE
  3. PARACETAMOL [Concomitant]
     Active Substance: ACETAMINOPHEN

REACTIONS (9)
  - Muscle spasms [Unknown]
  - Mania [Unknown]
  - Abnormal faeces [Unknown]
  - Paraesthesia [Unknown]
  - Blindness unilateral [Recovered/Resolved]
  - Gastrointestinal motility disorder [Unknown]
  - Heart rate increased [Unknown]
  - Micturition urgency [Unknown]
  - Hypoaesthesia [Unknown]

NARRATIVE: CASE EVENT DATE: 20170501
